FAERS Safety Report 9611108 (Version 1)
Quarter: 2013Q4

REPORT INFORMATION
  Report Type: Report from Study
  Country: US (occurrence: US)
  Receive Date: 20131009
  Receipt Date: 20131009
  Transmission Date: 20140711
  Serious: Yes (Hospitalization)
  Sender: FDA-Public Use
  Company Number: US-ROCHE-1283107

PATIENT
  Age: 85 Year
  Sex: Female

DRUGS (24)
  1. TOCILIZUMAB [Suspect]
     Indication: RHEUMATOID ARTHRITIS
     Dosage: LAST DOSE OF TOCILIZUMAB PRIOR TO SERIOUS ADVERSE EVENT WAS ON 27/AUG/2013
     Route: 042
     Dates: start: 20111219
  2. CLARITIN [Concomitant]
     Route: 048
     Dates: start: 20120606, end: 20120606
  3. CLARITIN [Concomitant]
     Route: 048
     Dates: start: 20121220, end: 20121220
  4. CLARITIN [Concomitant]
     Route: 048
     Dates: start: 20130319, end: 20130319
  5. CLARITIN [Concomitant]
     Route: 048
     Dates: start: 20130509, end: 20130509
  6. PRILOSEC [Concomitant]
     Route: 048
     Dates: start: 20041104
  7. LIPITOR [Concomitant]
     Indication: HYPERLIPIDAEMIA
     Route: 048
     Dates: start: 20080404
  8. PREDNISONE [Concomitant]
     Indication: RHEUMATOID ARTHRITIS
     Route: 048
     Dates: start: 20081114
  9. HYDROXYCHLOROQUINE [Concomitant]
     Indication: RHEUMATOID ARTHRITIS
     Route: 048
     Dates: start: 20041104
  10. AMLODIPIN [Concomitant]
     Indication: HYPERTENSION
     Route: 048
     Dates: start: 20110923
  11. CITRACAL + D [Concomitant]
     Indication: OSTEOPOROSIS
     Route: 048
     Dates: start: 20041104
  12. TYLENOL [Concomitant]
     Indication: RHEUMATOID ARTHRITIS
     Route: 048
     Dates: start: 20041104
  13. TYLENOL [Concomitant]
     Route: 048
     Dates: start: 20120606, end: 20120606
  14. TYLENOL [Concomitant]
     Route: 048
     Dates: start: 20121220, end: 20121220
  15. TYLENOL [Concomitant]
     Route: 048
     Dates: start: 20130214, end: 20130214
  16. TYLENOL [Concomitant]
     Route: 048
     Dates: start: 20130313, end: 20130313
  17. TYLENOL [Concomitant]
     Route: 048
     Dates: start: 20130827, end: 20130827
  18. VISINE TEARS [Concomitant]
     Dosage: 1 DROP LIQUID
     Route: 065
     Dates: start: 20000313
  19. METAMUCIL [Concomitant]
     Route: 048
     Dates: start: 20111123
  20. EVISTA [Concomitant]
     Indication: OSTEOPOROSIS
     Route: 048
     Dates: start: 20111123
  21. LISINOPRIL [Concomitant]
     Route: 048
     Dates: start: 20110405
  22. SOLU-MEDROL [Concomitant]
     Route: 030
     Dates: start: 20121121, end: 20121121
  23. DIOVAN [Concomitant]
     Indication: HYPERTENSION
     Route: 048
     Dates: start: 20121115, end: 20130214
  24. HYDRALAZINE [Concomitant]
     Indication: HYPERTENSION
     Route: 048
     Dates: start: 20130216

REACTIONS (4)
  - Dyspnoea [Not Recovered/Not Resolved]
  - Abdominal pain [Not Recovered/Not Resolved]
  - Back pain [Not Recovered/Not Resolved]
  - Chills [Not Recovered/Not Resolved]
